FAERS Safety Report 9450585 (Version 3)
Quarter: 2013Q4

REPORT INFORMATION
  Report Type: Spontaneous
  Country: FR (occurrence: FR)
  Receive Date: 20130809
  Receipt Date: 20131003
  Transmission Date: 20140711
  Serious: Yes (Hospitalization, Disabling)
  Sender: FDA-Public Use
  Company Number: FR-GLAXOSMITHKLINE-B0913429A

PATIENT
  Age: 41 Year
  Sex: Female
  Weight: 60 kg

DRUGS (6)
  1. NARAMIG [Suspect]
     Indication: MIGRAINE
     Route: 048
  2. TEXODIL [Concomitant]
     Indication: EAR INFECTION
     Dosage: 2UNIT PER DAY
     Route: 048
     Dates: start: 20121217, end: 20121223
  3. ORELOX [Concomitant]
     Indication: PRODUCT USED FOR UNKNOWN INDICATION
     Dosage: 2UNIT PER DAY
     Route: 048
     Dates: start: 20130423, end: 20130428
  4. SECNIDAZOLE [Concomitant]
     Indication: FUNGAL INFECTION
     Dosage: 1UNIT PER DAY
     Route: 048
     Dates: start: 20130525
  5. VIBRAMYCINE [Concomitant]
     Indication: URINARY TRACT INFECTION
     Dosage: 2UNIT PER DAY
     Route: 048
     Dates: start: 20130627, end: 20130706
  6. OFLOCET [Concomitant]
     Route: 001
     Dates: start: 201212, end: 201212

REACTIONS (5)
  - Vertigo [Not Recovered/Not Resolved]
  - Balance disorder [Not Recovered/Not Resolved]
  - Vestibular neuronitis [Not Recovered/Not Resolved]
  - Vestibular disorder [Not Recovered/Not Resolved]
  - Ototoxicity [Not Recovered/Not Resolved]
